FAERS Safety Report 8302165-8 (Version None)
Quarter: 2012Q2

REPORT INFORMATION
  Report Type: 
  Country: None (occurrence: None)
  Receive Date: 20120420
  Receipt Date: 20120411
  Transmission Date: 20120825
  Serious: Yes (Hospitalization, Other)
  Sender: FDA-Public Use
  Company Number: PL-ROCHE-1059038

PATIENT
  Sex: Female

DRUGS (10)
  1. OMEPRAZOLE [Concomitant]
     Indication: DYSPEPSIA
     Route: 048
  2. ROSUVASTATIN [Concomitant]
     Indication: LIPIDS ABNORMAL
     Route: 048
  3. CALPEROS [Concomitant]
     Indication: OSTEOPOROSIS
     Route: 048
  4. ASPIRIN [Concomitant]
     Indication: HYPERTENSION
  5. PROTEVASC SR [Concomitant]
     Indication: MYOCARDIAL ISCHAEMIA
  6. LEVOTHYROXINE SODIUM [Concomitant]
     Route: 048
  7. ERGOCALCIFEROL [Concomitant]
     Indication: OSTEOPOROSIS
     Route: 048
  8. BONIVA [Suspect]
     Indication: OSTEOPOROSIS
     Route: 042
     Dates: start: 20100101, end: 20111001
  9. EBIVOL [Concomitant]
     Indication: HYPERTENSION
     Route: 048
  10. TELMISARTAN [Concomitant]
     Dosage: 1/2 PER 1 DAY, DRUG NAME TOLURA

REACTIONS (4)
  - MYALGIA [None]
  - ARTHRALGIA [None]
  - BONE PAIN [None]
  - INFLUENZA [None]
